FAERS Safety Report 19004216 (Version 2)
Quarter: 2021Q2

REPORT INFORMATION
  Report Type: Report from Study
  Country: CA (occurrence: CA)
  Receive Date: 20210312
  Receipt Date: 20210527
  Transmission Date: 20210717
  Serious: Yes (Hospitalization)
  Sender: FDA-Public Use
  Company Number: CA-FERRINGPH-2021FE00258

PATIENT
  Age: 77 Year
  Sex: Male

DRUGS (2)
  1. DEGARELIX [Suspect]
     Active Substance: DEGARELIX
     Dosage: 80 MG, MONTHLY
     Route: 065
     Dates: start: 20201021
  2. DEGARELIX [Suspect]
     Active Substance: DEGARELIX
     Indication: HORMONE-DEPENDENT PROSTATE CANCER
     Dosage: 240 MG, ONCE/SINGLE
     Route: 065
     Dates: start: 20200921, end: 20200921

REACTIONS (8)
  - Myalgia [Not Recovered/Not Resolved]
  - Product use issue [Recovered/Resolved]
  - Urosepsis [Recovered/Resolved]
  - Cystitis [Unknown]
  - Staphylococcal infection [Unknown]
  - Off label use [Recovered/Resolved]
  - Hot flush [Not Recovered/Not Resolved]
  - Atrial fibrillation [Recovered/Resolved]

NARRATIVE: CASE EVENT DATE: 202009
